FAERS Safety Report 15362534 (Version 1)
Quarter: 2018Q3

REPORT INFORMATION
  Report Type: Spontaneous
  Country: US (occurrence: US)
  Receive Date: 20180907
  Receipt Date: 20180907
  Transmission Date: 20181010
  Serious: No
  Sender: FDA-Public Use
  Company Number: US-SUNOVION-2018SUN003278

PATIENT
  Sex: Female

DRUGS (2)
  1. ESZOPICLONE. [Suspect]
     Active Substance: ESZOPICLONE
     Dosage: UNKNOWN
     Route: 048
  2. BENICAR [Concomitant]
     Active Substance: OLMESARTAN MEDOXOMIL
     Dosage: UNKNOWN
     Route: 065

REACTIONS (5)
  - Migraine [Unknown]
  - Tremor [Unknown]
  - Insomnia [Unknown]
  - Sleep terror [Unknown]
  - Restless legs syndrome [Unknown]
